FAERS Safety Report 23487535 (Version 6)
Quarter: 2025Q3

REPORT INFORMATION
  Report Type: Spontaneous
  Country: US (occurrence: US)
  Receive Date: 20240206
  Receipt Date: 20250822
  Transmission Date: 20251021
  Serious: No
  Sender: BIOGEN
  Company Number: US-BIOGEN-2024BI01248011

PATIENT
  Sex: Female

DRUGS (2)
  1. VUMERITY [Suspect]
     Active Substance: DIROXIMEL FUMARATE
     Indication: Multiple sclerosis
     Dosage: ALSO REPORTED AS 31-JAN-2024
     Route: 050
     Dates: start: 20240127, end: 20240202
  2. VUMERITY [Suspect]
     Active Substance: DIROXIMEL FUMARATE
     Route: 050
     Dates: start: 20240203, end: 20250106

REACTIONS (5)
  - Product dose omission in error [Recovered/Resolved]
  - Multiple sclerosis relapse [Unknown]
  - Pruritus [Recovered/Resolved]
  - Flushing [Recovered/Resolved]
  - Autoimmune thyroiditis [Not Recovered/Not Resolved]

NARRATIVE: CASE EVENT DATE: 20240101
